FAERS Safety Report 18485287 (Version 1)
Quarter: 2020Q4

REPORT INFORMATION
  Report Type: Spontaneous
  Country: US (occurrence: US)
  Receive Date: 20201110
  Receipt Date: 20201110
  Transmission Date: 20210114
  Serious: No
  Sender: FDA-Public Use
  Company Number: US-FAGRON STERILE SERVICES-2094741

PATIENT

DRUGS (1)
  1. TROPICAMIDE 1%/CYCLOPENTOLATE 1%/ PHENYLEPHRINE 2.5% 0.5ML SYRINGE. [Suspect]
     Active Substance: CYCLOPENTOLATE\PHENYLEPHRINE\TROPICAMIDE

REACTIONS (1)
  - Drug ineffective [None]
